FAERS Safety Report 4539845-6 (Version None)
Quarter: 2004Q4

REPORT INFORMATION
  Report Type: 
  Country: None (occurrence: None)
  Receive Date: 20041222
  Receipt Date: 20041208
  Transmission Date: 20050328
  Serious: Yes (Other)
  Sender: FDA-Public Use
  Company Number: USA041285614

PATIENT
  Age: 75 Year
  Sex: Male

DRUGS (1)
  1. GEMZAR [Suspect]

REACTIONS (3)
  - PULMONARY FIBROSIS [None]
  - RENAL FAILURE [None]
  - RESPIRATORY FAILURE [None]
